FAERS Safety Report 13633599 (Version 1)
Quarter: 2017Q2

REPORT INFORMATION
  Report Type: Spontaneous
  Country: US (occurrence: US)
  Receive Date: 20170531
  Receipt Date: 20170531
  Transmission Date: 20170830
  Serious: No
  Sender: FDA-Public Use
  Company Number: US-ASTELLAS-1560575

PATIENT
  Sex: Male

DRUGS (2)
  1. LISINOPRIL. [Concomitant]
     Active Substance: LISINOPRIL
  2. TARCEVA [Suspect]
     Active Substance: ERLOTINIB HYDROCHLORIDE
     Indication: BASAL CELL CARCINOMA
     Route: 048
     Dates: start: 20140305

REACTIONS (4)
  - Weight decreased [Unknown]
  - Madarosis [Unknown]
  - Alopecia [Unknown]
  - Fatigue [Unknown]
